FAERS Safety Report 25274750 (Version 2)
Quarter: 2025Q2

REPORT INFORMATION
  Report Type: Spontaneous
  Country: DE (occurrence: DE)
  Receive Date: 20250506
  Receipt Date: 20250508
  Transmission Date: 20250716
  Serious: No
  Sender: ALEXION PHARMACEUTICALS
  Company Number: DE-AstraZeneca-CH-00861450AM

PATIENT

DRUGS (1)
  1. ROFLUMILAST [Suspect]
     Active Substance: ROFLUMILAST

REACTIONS (1)
  - Off label use [Unknown]
